FAERS Safety Report 4584917-3 (Version None)
Quarter: 2005Q1

REPORT INFORMATION
  Report Type: 
  Country: None (occurrence: None)
  Receive Date: 20050217
  Receipt Date: 20041111
  Transmission Date: 20050727
  Serious: No
  Sender: FDA-Public Use
  Company Number: US-GLAXOSMITHKLINE-A0533603A

PATIENT
  Sex: Female

DRUGS (8)
  1. WELLBUTRIN XL [Suspect]
     Indication: DEPRESSION
     Dosage: 150MG PER DAY
     Route: 048
  2. CARDIZEM [Concomitant]
  3. DYAZIDE [Concomitant]
  4. K-DUR 10 [Concomitant]
  5. GLYBURIDE [Concomitant]
  6. TOPROL-XL [Concomitant]
  7. PRAVACHOL [Concomitant]
  8. XANAX [Concomitant]

REACTIONS (1)
  - CONSTIPATION [None]
